FAERS Safety Report 5071680-5 (Version None)
Quarter: 2006Q3

REPORT INFORMATION
  Report Type: 
  Country: None (occurrence: None)
  Receive Date: 20060801
  Receipt Date: 20060717
  Transmission Date: 20061208
  Serious: Yes (Other)
  Sender: FDA-Public Use
  Company Number: PHBS2006FR10812

PATIENT
  Age: 25 Year
  Sex: Female

DRUGS (5)
  1. CYCLOSPORINE [Suspect]
     Indication: LUNG TRANSPLANT
  2. AZATHIOPRINE [Suspect]
     Indication: LUNG TRANSPLANT
  3. PREDNISONE [Suspect]
     Indication: LUNG TRANSPLANT
  4. TACROLIMUS (TACROLIMUS) [Suspect]
     Indication: LUNG TRANSPLANT
  5. MYCOPHENOLATE MOFETIL [Suspect]
     Indication: LUNG TRANSPLANT

REACTIONS (18)
  - BRONCHOPULMONARY ASPERGILLOSIS [None]
  - DIVERTICULUM [None]
  - HILAR LYMPHADENOPATHY [None]
  - LUNG INFECTION PSEUDOMONAL [None]
  - LUNG INFILTRATION [None]
  - LUNG TRANSPLANT REJECTION [None]
  - LYMPHADENOPATHY [None]
  - MALLORY-WEISS SYNDROME [None]
  - MEDIASTINAL ABSCESS [None]
  - MEDIASTINAL DISORDER [None]
  - NEUTROPENIA [None]
  - OBLITERATIVE BRONCHIOLITIS [None]
  - PULMONARY FUNCTION TEST DECREASED [None]
  - PULMONARY HILAR ENLARGEMENT [None]
  - PULMONARY MASS [None]
  - SMALL CELL LUNG CANCER STAGE UNSPECIFIED [None]
  - TRACHEAL DISORDER [None]
  - VOMITING [None]
